FAERS Safety Report 10053537 (Version 2)
Quarter: 2014Q2

REPORT INFORMATION
  Report Type: Spontaneous
  Country: US (occurrence: US)
  Receive Date: 20140402
  Receipt Date: 20140402
  Transmission Date: 20141212
  Serious: Yes (Life-Threatening, Hospitalization)
  Sender: FDA-Public Use
  Company Number: US-PFIZER INC-2014087326

PATIENT
  Age: 32 Year
  Sex: Male

DRUGS (9)
  1. HYDROXYZINE PAMOATE [Suspect]
     Indication: ANXIETY
     Dosage: 50 MG, AS NEEDED
  2. HALOPERIDOL [Suspect]
     Dosage: 2 MG IN THE MORNING DAILY AND 5 MG AT BEDTIME
  3. LEVOTHYROXINE SODIUM [Suspect]
     Dosage: 100 UG, DAILY
  4. DIVALPROEX SODIUM [Suspect]
     Dosage: 500 MG, 1X/DAY
  5. CHLORPROMAZINE [Suspect]
     Dosage: 100 MG, 2X/DAY
  6. BENZTROPINE MESYLATE [Suspect]
     Dosage: 2 MG, 2X/DAY
  7. ACETAMINOPHEN [Suspect]
     Dosage: 500 MG, EVERY 6 HOURS
  8. CITALOPRAM [Suspect]
     Dosage: 40 MG, 1X/DAY
  9. PSYLLIUM [Suspect]
     Dosage: AS NEEDED

REACTIONS (1)
  - Neuroleptic malignant syndrome [Recovering/Resolving]
